FAERS Safety Report 4999811-3 (Version None)
Quarter: 2006Q2

REPORT INFORMATION
  Report Type: 
  Country: None (occurrence: None)
  Receive Date: 20060509
  Receipt Date: 20060509
  Transmission Date: 20061013
  Serious: Yes (Hospitalization)
  Sender: FDA-Public Use
  Company Number: None

PATIENT
  Sex: Female
  Weight: 46.7205 kg

DRUGS (1)
  1. OXANDRIN [Suspect]
     Indication: WEIGHT DECREASED
     Dosage: 10MG ONE PILL TWICE A DAY

REACTIONS (6)
  - ANOREXIA [None]
  - DEHYDRATION [None]
  - DYSPHASIA [None]
  - FATIGUE [None]
  - HAEMOGLOBIN DECREASED [None]
  - WEIGHT DECREASED [None]
